FAERS Safety Report 7179627-2 (Version None)
Quarter: 2010Q4

REPORT INFORMATION
  Report Type: 
  Country: None (occurrence: None)
  Receive Date: 20101221
  Receipt Date: 20100413
  Transmission Date: 20110411
  Serious: Yes (Other)
  Sender: FDA-Public Use
  Company Number: NZ-ROCHE-697340

PATIENT
  Age: 22 Year
  Sex: Female

DRUGS (6)
  1. OSELTAMIVIR [Suspect]
     Indication: H1N1 INFLUENZA
     Route: 050
  2. AUGMENTIN '125' [Concomitant]
  3. NORADRENALINE [Concomitant]
     Indication: HYPOTENSION
  4. CLARITHROMYCIN [Concomitant]
  5. CEFEPIME [Concomitant]
  6. VANCOMYCIN [Concomitant]

REACTIONS (1)
  - SWOLLEN TONGUE [None]
